FAERS Safety Report 8844679 (Version 1)
Quarter: 2012Q4

REPORT INFORMATION
  Report Type: 
  Country: US (occurrence: US)
  Receive Date: 20121017
  Receipt Date: 20121017
  Transmission Date: 20130627
  Serious: No
  Sender: FDA-Public Use
  Company Number: US-BAYER-2012-104544

PATIENT
  Age: 22 Year
  Sex: Female

DRUGS (2)
  1. BEYAZ [Suspect]
     Indication: CONTRACEPTION
     Dosage: 3mg/0.02mg/0.451mg and 0.451
     Route: 048
  2. BEYAZ [Suspect]
     Indication: MENSTRUAL CYCLE MANAGEMENT

REACTIONS (1)
  - No adverse event [None]
